FAERS Safety Report 4489700-5 (Version None)
Quarter: 2004Q4

REPORT INFORMATION
  Report Type: 
  Country: None (occurrence: None)
  Receive Date: 20041101
  Receipt Date: 20041020
  Transmission Date: 20050328
  Serious: Yes (Hospitalization)
  Sender: FDA-Public Use
  Company Number: FR-BRISTOL-MYERS SQUIBB COMPANY-12738696

PATIENT
  Age: 32 Year
  Sex: Male
  Weight: 58 kg

DRUGS (6)
  1. ZERIT [Suspect]
     Route: 048
     Dates: start: 20020501
  2. EPIVIR [Suspect]
     Route: 048
     Dates: start: 20020501
  3. KALETRA [Suspect]
     Route: 048
     Dates: start: 20020501
  4. PREDNISONE TAB [Suspect]
     Route: 048
     Dates: end: 20020501
  5. DEPO-MEDROL [Suspect]
     Route: 037
     Dates: end: 20020501
  6. METHOTREXATE [Suspect]
     Route: 037
     Dates: end: 20020501

REACTIONS (2)
  - HYPERTRIGLYCERIDAEMIA [None]
  - OSTEONECROSIS [None]
